FAERS Safety Report 15839558 (Version 1)
Quarter: 2019Q1

REPORT INFORMATION
  Report Type: Spontaneous
  Country: US (occurrence: US)
  Receive Date: 20190117
  Receipt Date: 20190117
  Transmission Date: 20190417
  Serious: Yes (Other)
  Sender: FDA-Public Use
  Company Number: US-REGENERON PHARMACEUTICALS, INC.-2018-14472

PATIENT

DRUGS (2)
  1. EYLEA [Suspect]
     Active Substance: AFLIBERCEPT
     Indication: NEOVASCULAR AGE-RELATED MACULAR DEGENERATION
     Dosage: UNK, EVERY 12 WEEKS, LAST DOSE
     Route: 031
     Dates: start: 20180131, end: 20180131
  2. EYLEA [Suspect]
     Active Substance: AFLIBERCEPT
     Indication: CHOROIDAL NEOVASCULARISATION
     Dosage: UNK, EVERY 12 WEEKS
     Route: 031
     Dates: start: 20150615

REACTIONS (2)
  - Non-infectious endophthalmitis [Unknown]
  - Visual acuity reduced [Recovering/Resolving]

NARRATIVE: CASE EVENT DATE: 2018
